FAERS Safety Report 6834491-3 (Version None)
Quarter: 2010Q3

REPORT INFORMATION
  Report Type: 
  Country: None (occurrence: None)
  Receive Date: 20100712
  Receipt Date: 20070629
  Transmission Date: 20110219
  Serious: No
  Sender: FDA-Public Use
  Company Number: US-PFIZER INC-2007026644

PATIENT
  Age: 82 Year
  Sex: Female

DRUGS (4)
  1. CHANTIX [Suspect]
     Dates: start: 20070323
  2. LORAZEPAM [Concomitant]
     Indication: SLEEP DISORDER
  3. DILTIAZEM [Concomitant]
     Indication: HYPERTENSION
  4. FOSAMAX [Concomitant]

REACTIONS (1)
  - BLOOD PRESSURE DECREASED [None]
